FAERS Safety Report 7828900-0 (Version None)
Quarter: 2011Q4

REPORT INFORMATION
  Report Type: 
  Country: None (occurrence: None)
  Receive Date: 20111020
  Receipt Date: 20111011
  Transmission Date: 20120403
  Serious: Yes (Other)
  Sender: FDA-Public Use
  Company Number: US-BAYER-2011-097736

PATIENT
  Sex: Female

DRUGS (2)
  1. MIRENA [Suspect]
     Indication: CONTRACEPTION
     Dosage: 20 MCG/24HR, CONT
     Dates: start: 20110401, end: 20110909
  2. MIRENA [Suspect]
     Indication: MENORRHAGIA

REACTIONS (4)
  - ANAEMIA [None]
  - ABDOMINAL PAIN [None]
  - MENORRHAGIA [None]
  - GENITAL HAEMORRHAGE [None]
